FAERS Safety Report 6106276-7 (Version None)
Quarter: 2009Q1

REPORT INFORMATION
  Report Type: 
  Country: None (occurrence: None)
  Receive Date: 20090306
  Receipt Date: 20090226
  Transmission Date: 20090719
  Serious: Yes (Death, Hospitalization)
  Sender: FDA-Public Use
  Company Number: US-BRISTOL-MYERS SQUIBB COMPANY-14522569

PATIENT
  Age: 49 Year
  Sex: Female
  Weight: 46 kg

DRUGS (4)
  1. IXEMPRA KIT [Suspect]
     Indication: CERVIX CARCINOMA
     Dosage: STARTED ON 08DEC08;(6MG/M2)OVER 60 MTS ON DAYS 1-5;
     Route: 042
     Dates: start: 20090125, end: 20090125
  2. ENOXAPARIN SODIUM [Suspect]
  3. DIPHENHYDRAMINE HCL [Concomitant]
  4. RANITIDINE [Concomitant]

REACTIONS (1)
  - CEREBRAL HAEMORRHAGE [None]
